FAERS Safety Report 7945188-0 (Version None)
Quarter: 2011Q4

REPORT INFORMATION
  Report Type: 
  Country: None (occurrence: None)
  Receive Date: 20111129
  Receipt Date: 20111107
  Transmission Date: 20120403
  Serious: No
  Sender: FDA-Public Use
  Company Number: US-ROXANE LABORATORIES, INC.-2011-RO-01605RO

PATIENT
  Sex: Male

DRUGS (2)
  1. METHADONE HYDROCHLORIDE [Suspect]
     Indication: PAIN
     Dosage: 90 MG
     Route: 048
     Dates: start: 20060101
  2. MORPHINE [Suspect]
     Route: 048

REACTIONS (4)
  - PRURITUS [None]
  - PRODUCT COMMINGLING [None]
  - HYPERHIDROSIS [None]
  - HOT FLUSH [None]
